FAERS Safety Report 11867231 (Version 2)
Quarter: 2016Q2

REPORT INFORMATION
  Report Type: Spontaneous
  Country: FR (occurrence: FR)
  Receive Date: 20151224
  Receipt Date: 20160628
  Transmission Date: 20160815
  Serious: Yes (Disabling, Other)
  Sender: FDA-Public Use
  Company Number: FR-ASTRAZENECA-2015SF23139

PATIENT
  Age: 809 Month
  Sex: Female

DRUGS (5)
  1. ATACAND [Concomitant]
     Active Substance: CANDESARTAN CILEXETIL
  2. KARDEGIC [Concomitant]
     Active Substance: ASPIRIN LYSINE
  3. ANTIHYPERTENSIVE TREATMENT [Concomitant]
     Indication: HYPERTENSION
  4. IRESSA [Suspect]
     Active Substance: GEFITINIB
     Indication: LUNG NEOPLASM MALIGNANT
     Route: 048
     Dates: start: 20131223
  5. IRESSA [Suspect]
     Active Substance: GEFITINIB
     Indication: LUNG NEOPLASM MALIGNANT
     Route: 048
     Dates: start: 201301

REACTIONS (6)
  - Paraneoplastic syndrome [Not Recovered/Not Resolved]
  - Malignant neoplasm progression [Not Recovered/Not Resolved]
  - Metastases to meninges [Unknown]
  - Spinal fracture [Recovering/Resolving]
  - Impaired healing [Recovering/Resolving]
  - Gastritis [Not Recovered/Not Resolved]

NARRATIVE: CASE EVENT DATE: 201302
